FAERS Safety Report 4579173-6 (Version None)
Quarter: 2005Q1

REPORT INFORMATION
  Report Type: 
  Country: None (occurrence: None)
  Receive Date: 20050208
  Receipt Date: 20050208
  Transmission Date: 20050727
  Serious: Yes (Other)
  Sender: FDA-Public Use
  Company Number: None

PATIENT
  Sex: Male

DRUGS (1)
  1. DIPHENHYDRAMINE HCL [Suspect]
     Indication: HYPERSENSITIVITY
     Dosage: 25 MG     TWICE DAILY   ORAL
     Route: 048
     Dates: start: 20020825, end: 20030903

REACTIONS (1)
  - DRUG HYPERSENSITIVITY [None]
